FAERS Safety Report 22024262 (Version 9)
Quarter: 2023Q4

REPORT INFORMATION
  Report Type: Spontaneous
  Country: US (occurrence: US)
  Receive Date: 20230223
  Receipt Date: 20231005
  Transmission Date: 20240110
  Serious: Yes (Other)
  Sender: FDA-Public Use
  Company Number: US-BRISTOL-MYERS SQUIBB COMPANY-2023-026442

PATIENT
  Age: 79 Year
  Sex: Female

DRUGS (3)
  1. LENALIDOMIDE [Suspect]
     Active Substance: LENALIDOMIDE
     Indication: Plasma cell myeloma
     Dosage: FREQ - TAKE 1 CAPSULE BY MOUTH EVERY DAY FOR 14 DAYS, OFF 7 DAYS, REPEAT
     Route: 048
     Dates: start: 20230202, end: 20230516
  2. LENALIDOMIDE [Suspect]
     Active Substance: LENALIDOMIDE
     Dosage: FREQ - TAKE 1 CAPSULE BY MOUTH EVERY DAY FOR 14 DAYS, OFF 7 DAYS, REPEAT, CURRENTLY ONGOING
     Route: 048
  3. VELCADE [Concomitant]
     Active Substance: BORTEZOMIB
     Indication: Product used for unknown indication

REACTIONS (10)
  - Tooth disorder [Not Recovered/Not Resolved]
  - Thrombosis [Unknown]
  - Diarrhoea [Recovering/Resolving]
  - Malaise [Not Recovered/Not Resolved]
  - Dizziness [Unknown]
  - Off label use [Unknown]
  - Fatigue [Not Recovered/Not Resolved]
  - Myalgia [Not Recovered/Not Resolved]
  - Pain in extremity [Unknown]
  - Balance disorder [Unknown]

NARRATIVE: CASE EVENT DATE: 20230611
